FAERS Safety Report 7957598-6 (Version None)
Quarter: 2011Q4

REPORT INFORMATION
  Report Type: 
  Country: None (occurrence: None)
  Receive Date: 20111205
  Receipt Date: 20111122
  Transmission Date: 20120403
  Serious: Yes (Hospitalization)
  Sender: FDA-Public Use
  Company Number: IT-NOVOPROD-336947

PATIENT

DRUGS (7)
  1. VICTOZA [Suspect]
     Indication: OBESITY
  2. RAMIPRIL [Concomitant]
  3. GLIBOMET [Concomitant]
     Dosage: 7.5 MG, QD
  4. ZUGLIMET [Concomitant]
     Dosage: 2000 MG, QD
  5. ASPIRIN [Concomitant]
  6. PANTOPRAZOLE SODIUM [Concomitant]
  7. VICTOZA [Suspect]
     Indication: TYPE 2 DIABETES MELLITUS
     Dosage: 1.2 MG, QD
     Dates: start: 20110927, end: 20111011

REACTIONS (5)
  - HYPOVOLAEMIC SHOCK [None]
  - BLOOD CREATININE INCREASED [None]
  - ACUTE RESPIRATORY FAILURE [None]
  - LACTIC ACIDOSIS [None]
  - GASTROENTERITIS [None]
